FAERS Safety Report 7300931-9 (Version None)
Quarter: 2011Q1

REPORT INFORMATION
  Report Type: 
  Country: None (occurrence: None)
  Receive Date: 20110218
  Receipt Date: 20110217
  Transmission Date: 20110831
  Serious: Yes (Death, Life-Threatening, Hospitalization)
  Sender: FDA-Public Use
  Company Number: GR-CELGENEUS-066-C5013-10100686

PATIENT
  Sex: Male
  Weight: 83 kg

DRUGS (6)
  1. PREDNISONE [Suspect]
     Indication: MULTIPLE MYELOMA
     Route: 065
     Dates: start: 20080407, end: 20090218
  2. ALPHACALCIDOL [Concomitant]
     Route: 048
     Dates: start: 20080915
  3. CC-5013 [Suspect]
     Indication: MULTIPLE MYELOMA
     Route: 048
     Dates: start: 20080407, end: 20091129
  4. MELPHALAN [Suspect]
     Indication: MULTIPLE MYELOMA
     Route: 065
     Dates: start: 20080407, end: 20090218
  5. VALACYCLOVIR [Concomitant]
     Indication: PROPHYLAXIS
     Route: 048
     Dates: start: 20080407
  6. TELMISARTAN [Concomitant]
     Indication: HYPERTENSION
     Route: 048
     Dates: start: 19980901

REACTIONS (1)
  - ACUTE MYELOID LEUKAEMIA [None]
